FAERS Safety Report 4924517-6 (Version None)
Quarter: 2006Q1

REPORT INFORMATION
  Report Type: 
  Country: None (occurrence: None)
  Receive Date: 20060222
  Receipt Date: 20060209
  Transmission Date: 20060701
  Serious: Yes (Other)
  Sender: FDA-Public Use
  Company Number: 2006017112

PATIENT
  Age: 45 Year
  Sex: Male
  Weight: 64 kg

DRUGS (4)
  1. SOLU-MEDROL [Suspect]
     Indication: COLITIS ULCERATIVE
     Dosage: 500 MG INTRAVENOUS
  2. MESALAMINE [Concomitant]
  3. OMEPRAZOLE [Concomitant]
  4. PREDNISOLONE [Concomitant]

REACTIONS (2)
  - LUNG ABSCESS [None]
  - PULMONARY CAVITATION [None]
